FAERS Safety Report 6004712-8 (Version None)
Quarter: 2008Q4

REPORT INFORMATION
  Report Type: 
  Country: None (occurrence: None)
  Receive Date: 20081216
  Receipt Date: 20081211
  Transmission Date: 20090506
  Serious: Yes (Hospitalization)
  Sender: FDA-Public Use
  Company Number: NZ-ROXANE LABORATORIES, INC.-2008-RO-00404RO

PATIENT
  Age: 61 Year
  Sex: Female

DRUGS (7)
  1. LIDOCAINE [Suspect]
     Indication: NERVE BLOCK
     Dosage: 4ML
     Route: 031
  2. BUPIVACAINE [Suspect]
     Indication: NERVE BLOCK
     Dosage: 1ML
     Route: 031
  3. HYALASE [Suspect]
     Indication: NERVE BLOCK
     Route: 031
  4. ACETAMINOPHEN [Concomitant]
     Indication: EYE PAIN
  5. IBUPROFEN [Concomitant]
     Indication: EYE PAIN
  6. ACETAZOLAMIDE [Concomitant]
     Indication: EYE PAIN
     Route: 048
  7. METHYLPREDNISOLONE 16MG TAB [Concomitant]
     Indication: OCULAR RETROBULBAR HAEMORRHAGE

REACTIONS (1)
  - OCULAR RETROBULBAR HAEMORRHAGE [None]
